FAERS Safety Report 7760170-4 (Version None)
Quarter: 2011Q3

REPORT INFORMATION
  Report Type: 
  Country: None (occurrence: None)
  Receive Date: 20110919
  Receipt Date: 20110913
  Transmission Date: 20111222
  Serious: Yes (Life-Threatening, Hospitalization, Other)
  Sender: FDA-Public Use
  Company Number: US-ASTRAZENECA-2011SE34179

PATIENT
  Age: 57 Year
  Sex: Female
  Weight: 122.5 kg

DRUGS (26)
  1. ATENOLOL [Suspect]
     Route: 048
  2. FENTANYL [Suspect]
     Route: 048
  3. LORAZEPAM [Concomitant]
     Indication: ANXIETY POSTOPERATIVE
  4. HYDROCODONE [Concomitant]
     Indication: PAIN
     Dosage: 5/325 MG 4 TIMES A DAY
  5. ASPIRIN [Concomitant]
     Indication: CARDIAC DISORDER
  6. OMEPRAZOLE [Concomitant]
     Indication: BARRETT'S OESOPHAGUS
     Route: 048
  7. SYNTHROID [Concomitant]
  8. HYDROCODONE [Concomitant]
     Indication: SLEEP DISORDER
     Dosage: 5/325 MG 4 TIMES A DAY
  9. ASPIRIN [Concomitant]
     Indication: PAIN
  10. NITROSTAT [Concomitant]
     Indication: ANGINA PECTORIS
     Dosage: 0.4 MG 0-5 DAILY AS NEEDED
  11. ANUSOL HC [Concomitant]
     Indication: HAEMORRHAGE
     Dosage: 1 AS NEEDED
  12. ATACAND [Suspect]
     Route: 048
     Dates: start: 20101109, end: 20101129
  13. RANEXA [Concomitant]
     Indication: ANGINA PECTORIS
  14. ASPIRIN [Concomitant]
  15. ATACAND [Suspect]
     Route: 048
     Dates: start: 20101019
  16. OMEPRAZOLE [Concomitant]
     Indication: GASTROOESOPHAGEAL REFLUX DISEASE
     Route: 048
  17. LEVOTHYROXINE SODIUM [Concomitant]
     Indication: THYROID DISORDER
  18. SIMVASTATIN [Concomitant]
     Indication: HYPERCHOLESTEROLAEMIA
  19. ATACAND [Suspect]
     Route: 048
     Dates: start: 20110111, end: 20110414
  20. LISINOPRIL [Suspect]
     Route: 048
  21. METOPROLOL TARTRATE [Suspect]
     Route: 048
  22. LORAZEPAM [Concomitant]
     Indication: PROCEDURAL PAIN
  23. ASPIRIN [Concomitant]
  24. GOLYTELY [Concomitant]
     Indication: GASTROINTESTINAL HYPOMOTILITY
     Dosage: 1 CONTAINER IN SOLUTION EVERY TWO WEEKS
  25. ANUSOL HC [Concomitant]
     Indication: PAIN
     Dosage: 1 AS NEEDED
  26. LASIX [Concomitant]

REACTIONS (18)
  - DRUG HYPERSENSITIVITY [None]
  - FLATULENCE [None]
  - DYSPNOEA [None]
  - RENAL DISORDER [None]
  - BRADYCARDIA [None]
  - COLITIS ULCERATIVE [None]
  - DEHYDRATION [None]
  - LACTOSE INTOLERANCE [None]
  - DIARRHOEA [None]
  - PRURITUS [None]
  - COUGH [None]
  - HYPOTENSION [None]
  - CAROTID ARTERY OCCLUSION [None]
  - ABDOMINAL PAIN [None]
  - ABDOMINAL DISTENSION [None]
  - BLOOD COUNT ABNORMAL [None]
  - CEREBROVASCULAR ACCIDENT [None]
  - ANGINA PECTORIS [None]
